FAERS Safety Report 7347653-6 (Version None)
Quarter: 2011Q1

REPORT INFORMATION
  Report Type: 
  Country: None (occurrence: None)
  Receive Date: 20110311
  Receipt Date: 20101130
  Transmission Date: 20110831
  Serious: Yes (Hospitalization)
  Sender: FDA-Public Use
  Company Number: A0898257A

PATIENT
  Age: 51 Year
  Sex: Male

DRUGS (1)
  1. AVANDIA [Suspect]
     Indication: DIABETES MELLITUS
     Dosage: 4MG PER DAY
     Route: 048
     Dates: start: 20051201, end: 20080801

REACTIONS (4)
  - HEART TRANSPLANT [None]
  - VENTRICULAR ASSIST DEVICE INSERTION [None]
  - CARDIAC FAILURE CONGESTIVE [None]
  - CARDIAC FAILURE [None]
